FAERS Safety Report 23481143 (Version 1)
Quarter: 2024Q1

REPORT INFORMATION
  Report Type: Spontaneous
  Country: US (occurrence: None)
  Receive Date: 20240202
  Receipt Date: 20240202
  Transmission Date: 20240410
  Serious: Yes (Other)
  Sender: FDA-Public Use
  Company Number: None

PATIENT
  Age: 62 Year
  Sex: Female
  Weight: 74.25 kg

DRUGS (10)
  1. ALENDRONATE SODIUM [Suspect]
     Active Substance: ALENDRONATE SODIUM
     Indication: Osteoporosis
     Dosage: FREQUENCY : WEEKLY;?
     Route: 048
     Dates: start: 20240113, end: 20240120
  2. ALENDRONATE SODIUM [Suspect]
     Active Substance: ALENDRONATE SODIUM
     Indication: Osteitis deformans
  3. Azelastine HCl Nasal Spray 0.1% [Concomitant]
  4. PANTOPRAZOLE [Concomitant]
     Active Substance: PANTOPRAZOLE
  5. BENZONATATE [Concomitant]
     Active Substance: BENZONATATE
  6. VITAMIN D [Concomitant]
     Active Substance: VITAMIN D NOS
  7. Centrum Silver 50+ [Concomitant]
  8. Ester-C [Concomitant]
  9. CALCIUM [Concomitant]
     Active Substance: CALCIUM
  10. MAGNESIUM [Concomitant]
     Active Substance: MAGNESIUM

REACTIONS (5)
  - Pain in extremity [None]
  - Joint swelling [None]
  - Muscle spasms [None]
  - Gastrooesophageal reflux disease [None]
  - Oropharyngeal pain [None]

NARRATIVE: CASE EVENT DATE: 20240122
